FAERS Safety Report 23250162 (Version 1)
Quarter: 2023Q4

REPORT INFORMATION
  Report Type: Spontaneous
  Country: US (occurrence: US)
  Receive Date: 20231201
  Receipt Date: 20231201
  Transmission Date: 20240109
  Serious: Yes (Other)
  Sender: FDA-Public Use
  Company Number: US-MLMSERVICE-20231113-4658890-2

PATIENT
  Age: 8 Decade
  Sex: Female

DRUGS (7)
  1. ZOLEDRONIC ACID [Suspect]
     Active Substance: ZOLEDRONIC ACID
     Indication: Intraductal proliferative breast lesion
     Dosage: 10 COURSES OF ZOLEDRONIC ACID
  2. INSULIN NOS [Concomitant]
     Active Substance: INSULIN NOS
     Indication: Diabetes mellitus
  3. METFORMIN [Concomitant]
     Active Substance: METFORMIN HYDROCHLORIDE
     Indication: Diabetes mellitus
  4. POMALIDOMIDE [Concomitant]
     Active Substance: POMALIDOMIDE
     Indication: Plasma cell myeloma
  5. ANASTROZOLE [Concomitant]
     Active Substance: ANASTROZOLE
     Indication: Intraductal proliferative breast lesion
  6. ANASTROZOLE [Concomitant]
     Active Substance: ANASTROZOLE
     Indication: Triple negative breast cancer
  7. ZOLEDRONIC ACID [Suspect]
     Active Substance: ZOLEDRONIC ACID
     Indication: Triple negative breast cancer
     Dosage: 10 COURSES OF ZOLEDRONIC ACID

REACTIONS (4)
  - Candida infection [Unknown]
  - Osteonecrosis of jaw [Recovered/Resolved]
  - Infection [Unknown]
  - Off label use [Unknown]

NARRATIVE: CASE EVENT DATE: 20220101
